FAERS Safety Report 11432711 (Version 1)
Quarter: 2015Q3

REPORT INFORMATION
  Report Type: Report from Study
  Country: GR (occurrence: GR)
  Receive Date: 20150828
  Receipt Date: 20150828
  Transmission Date: 20151125
  Serious: Yes (Hospitalization)
  Sender: FDA-Public Use
  Company Number: GR-ABBVIE-15P-066-1449111-00

PATIENT
  Age: 74 Year
  Sex: Male

DRUGS (2)
  1. DUODOPA [Suspect]
     Active Substance: CARBIDOPA\LEVODOPA
     Dosage: MD: 11 ML,CR: 3.4 ML/H,ED: 1.6 ML
     Route: 050
     Dates: start: 20150716, end: 20150818
  2. DUODOPA [Suspect]
     Active Substance: CARBIDOPA\LEVODOPA
     Indication: PARKINSON^S DISEASE
     Dosage: MD: 11 ML,CD: 3.4 ML/H,ED: 1.6 ML
     Route: 050
     Dates: start: 20150707, end: 20150716

REACTIONS (4)
  - Pyrexia [Not Recovered/Not Resolved]
  - Respiratory tract infection [Not Recovered/Not Resolved]
  - Gastrointestinal infection [Unknown]
  - Diarrhoea [Not Recovered/Not Resolved]

NARRATIVE: CASE EVENT DATE: 20150804
